FAERS Safety Report 25397316 (Version 1)
Quarter: 2025Q2

REPORT INFORMATION
  Report Type: Spontaneous
  Country: IN (occurrence: IN)
  Receive Date: 20250604
  Receipt Date: 20250604
  Transmission Date: 20250717
  Serious: Yes (Other)
  Sender: GALPHARM INTERNATIONAL
  Company Number: IN-PERRIGO-25IN006787

PATIENT
  Age: 2 Decade
  Sex: Male

DRUGS (3)
  1. MINOXIDIL [Suspect]
     Active Substance: MINOXIDIL
     Indication: Alopecia
     Route: 061
  2. MINOXIDIL [Suspect]
     Active Substance: MINOXIDIL
     Indication: Alopecia
     Route: 048
  3. BIOTIN [Suspect]
     Active Substance: BIOTIN
     Indication: Alopecia
     Route: 048

REACTIONS (3)
  - Blindness transient [Recovered/Resolved]
  - Colour blindness [Recovered/Resolved]
  - Product administered at inappropriate site [Recovered/Resolved]
